FAERS Safety Report 14309556 (Version 1)
Quarter: 2017Q4

REPORT INFORMATION
  Report Type: Spontaneous
  Country: US (occurrence: US)
  Receive Date: 20171220
  Receipt Date: 20171220
  Transmission Date: 20180321
  Serious: Yes (Other)
  Sender: FDA-Public Use
  Company Number: US-BAYER-2017-239547

PATIENT
  Sex: Female

DRUGS (1)
  1. MIDOL EXTENDED RELIEF [Suspect]
     Active Substance: NAPROXEN SODIUM
     Dosage: UNK

REACTIONS (3)
  - Abdominal distension [Unknown]
  - Drug dependence [Unknown]
  - Muscle spasms [Unknown]
